FAERS Safety Report 6061901-4 (Version None)
Quarter: 2009Q1

REPORT INFORMATION
  Report Type: 
  Country: None (occurrence: None)
  Receive Date: 20090202
  Receipt Date: 20090122
  Transmission Date: 20090719
  Serious: Yes (Other)
  Sender: FDA-Public Use
  Company Number: PHBS2009CA00583

PATIENT
  Age: 50 Year
  Sex: Male

DRUGS (3)
  1. CARBAMAZEPINE [Suspect]
     Indication: MYOTONIA
     Dosage: 400 MG, TID
  2. RADIOTHERAPY [Concomitant]
     Indication: SQUAMOUS CELL CARCINOMA
     Dosage: 7000 CGY IN 35 FRACTIONS
  3. CISPLATIN [Concomitant]
     Indication: SQUAMOUS CELL CARCINOMA

REACTIONS (7)
  - ATAXIA [None]
  - BEDRIDDEN [None]
  - DYSPHAGIA [None]
  - OESOPHAGEAL DILATATION [None]
  - ORAL DISCOMFORT [None]
  - PAIN [None]
  - WEIGHT DECREASED [None]
